FAERS Safety Report 20229617 (Version 1)
Quarter: 2021Q4

REPORT INFORMATION
  Report Type: Spontaneous
  Country: IE (occurrence: IE)
  Receive Date: 20211226
  Receipt Date: 20211226
  Transmission Date: 20220303
  Serious: Yes (Other)
  Sender: FDA-Public Use
  Company Number: None

PATIENT
  Age: 72 Year
  Sex: Male
  Weight: 101 kg

DRUGS (16)
  1. TOCILIZUMAB [Suspect]
     Active Substance: TOCILIZUMAB
     Indication: COVID-19
     Dosage: 800MG STAT SINGLE DOSE
     Route: 042
     Dates: start: 20211130
  2. PREGABALIN [Concomitant]
     Active Substance: PREGABALIN
  3. BACLOFEN [Concomitant]
     Active Substance: BACLOFEN
  4. AMOXICILLIN\CLAVULANATE POTASSIUM [Concomitant]
     Active Substance: AMOXICILLIN\CLAVULANATE POTASSIUM
     Indication: Lower respiratory tract infection
     Dosage: 1.2G TDS
     Route: 042
  5. TOLTERODINE [Concomitant]
     Active Substance: TOLTERODINE
  6. ENOXAPARIN [Concomitant]
     Active Substance: ENOXAPARIN
  7. COMBIVENT UDVS [Concomitant]
  8. PRAMIPEXOLE [Concomitant]
     Active Substance: PRAMIPEXOLE
  9. AMANTADINE [Concomitant]
     Active Substance: AMANTADINE
     Dosage: 100MG BD
  10. CITALOPRAM [Concomitant]
     Active Substance: CITALOPRAM HYDROBROMIDE
  11. PANTOPRAZOLE [Concomitant]
     Active Substance: PANTOPRAZOLE
  12. ASPIRIN [Concomitant]
     Active Substance: ASPIRIN
  13. DEXAMETHASONE [Concomitant]
     Active Substance: DEXAMETHASONE
  14. ACETAMINOPHEN [Concomitant]
     Active Substance: ACETAMINOPHEN
  15. DICLOFENAC [Concomitant]
     Active Substance: DICLOFENAC
  16. OXYBUTYNIN [Concomitant]
     Active Substance: OXYBUTYNIN

REACTIONS (1)
  - Bradycardia [Not Recovered/Not Resolved]

NARRATIVE: CASE EVENT DATE: 20211201
